FAERS Safety Report 8116626-8 (Version None)
Quarter: 2012Q1

REPORT INFORMATION
  Report Type: 
  Country: None (occurrence: None)
  Receive Date: 20120206
  Receipt Date: 20120124
  Transmission Date: 20120608
  Serious: Yes (Other)
  Sender: FDA-Public Use
  Company Number: PHHY2012FR007294

PATIENT
  Age: 33 Year
  Sex: Female

DRUGS (1)
  1. SANDOSTATIN LAR [Suspect]
     Indication: PITUITARY TUMOUR BENIGN
     Dosage: 10 MG, UNK
     Route: 030
     Dates: start: 20111201

REACTIONS (3)
  - HYPOTENSION [None]
  - LOSS OF CONSCIOUSNESS [None]
  - MALAISE [None]
